FAERS Safety Report 8167660-3 (Version None)
Quarter: 2012Q1

REPORT INFORMATION
  Report Type: 
  Country: None (occurrence: None)
  Receive Date: 20120227
  Receipt Date: 20120220
  Transmission Date: 20120608
  Serious: Yes (Life-Threatening, Hospitalization)
  Sender: FDA-Public Use
  Company Number: ES-ROCHE-795268

PATIENT
  Sex: Female
  Weight: 62 kg

DRUGS (26)
  1. FUROSEMIDE [Concomitant]
  2. LORAZEPAM [Concomitant]
  3. AMLODIPINE [Concomitant]
  4. CLOPIDOGREL [Concomitant]
  5. PREDNISONE [Concomitant]
  6. COTRIM [Concomitant]
     Dosage: DOSE: 800/160MG
  7. NITROGLYCERIN [Concomitant]
     Route: 062
  8. OMEPRAZOLE [Concomitant]
  9. ASPIRIN [Concomitant]
  10. MYCOPHENOLATE MOFETIL (CELLCEPT) [Suspect]
     Indication: ANTI-NEUTROPHIL CYTOPLASMIC ANTIBODY POSITIVE VASCULITIS
     Route: 048
  11. MYCOPHENOLATE MOFETIL (CELLCEPT) [Suspect]
     Route: 048
     Dates: start: 20110720, end: 20110810
  12. PREDNISONE [Concomitant]
  13. PREDNISONE [Concomitant]
  14. BISOPROLOL FUMARATE [Concomitant]
  15. AZATHIOPRINE [Concomitant]
  16. AZATHIOPRINE [Concomitant]
  17. ALENDRONATE SODIUM [Concomitant]
  18. BISOPROLOL FUMARATE [Concomitant]
  19. MYCOPHENOLATE MOFETIL (CELLCEPT) [Suspect]
     Route: 048
  20. MYCOPHENOLATE MOFETIL (CELLCEPT) [Suspect]
     Route: 048
  21. PREDNISONE [Concomitant]
  22. CITALOPRAM HYDROBROMIDE [Concomitant]
  23. PRAVASTATIN [Concomitant]
  24. CALCIUM/VITAMIN D [Concomitant]
  25. PREDNISONE [Concomitant]
  26. ENALAPRIL MALEATE [Concomitant]

REACTIONS (7)
  - LUNG INFILTRATION [None]
  - GASTROINTESTINAL HAEMORRHAGE [None]
  - CYTOMEGALOVIRUS INFECTION [None]
  - URINARY TRACT INFECTION ENTEROCOCCAL [None]
  - PULMONARY EMBOLISM [None]
  - PYREXIA [None]
  - URINARY TRACT INFECTION [None]
